FAERS Safety Report 12970966 (Version 1)
Quarter: 2016Q4

REPORT INFORMATION
  Report Type: Spontaneous
  Country: US (occurrence: US)
  Receive Date: 20161123
  Receipt Date: 20161123
  Transmission Date: 20170207
  Serious: No
  Sender: FDA-Public Use
  Company Number: US-JAZZ-2016-US-020069

PATIENT
  Sex: Female

DRUGS (18)
  1. XYREM [Suspect]
     Active Substance: SODIUM OXYBATE
     Dosage: 4.5 G, BID
     Route: 048
     Dates: start: 201512
  2. CLONAZEPAM. [Concomitant]
     Active Substance: CLONAZEPAM
  3. XYREM [Suspect]
     Active Substance: SODIUM OXYBATE
     Dosage: DOSE ADJUSTMENTS
     Route: 048
     Dates: start: 201508, end: 201512
  4. NORCO [Concomitant]
     Active Substance: ACETAMINOPHEN\HYDROCODONE BITARTRATE
  5. ABILIFY [Concomitant]
     Active Substance: ARIPIPRAZOLE
  6. MODAFINIL. [Concomitant]
     Active Substance: MODAFINIL
  7. NEURONTIN [Concomitant]
     Active Substance: GABAPENTIN
  8. MULTIVITAMINS                      /00116001/ [Concomitant]
  9. COLCHICINE. [Concomitant]
     Active Substance: COLCHICINE
  10. METHOTREXATE. [Concomitant]
     Active Substance: METHOTREXATE
  11. VYVANSE [Concomitant]
     Active Substance: LISDEXAMFETAMINE DIMESYLATE
  12. LYRICA [Concomitant]
     Active Substance: PREGABALIN
  13. CYMBALTA [Concomitant]
     Active Substance: DULOXETINE HYDROCHLORIDE
  14. XYREM [Suspect]
     Active Substance: SODIUM OXYBATE
     Indication: NARCOLEPSY
     Dosage: 2.25 G, BID
     Route: 048
     Dates: start: 201507, end: 201508
  15. LATUDA [Concomitant]
     Active Substance: LURASIDONE HYDROCHLORIDE
  16. GEODON [Concomitant]
     Active Substance: ZIPRASIDONE HYDROCHLORIDE\ZIPRASIDONE MESYLATE
  17. FOLIC ACID. [Concomitant]
     Active Substance: FOLIC ACID
  18. ADDERALL [Concomitant]
     Active Substance: AMPHETAMINE ASPARTATE\AMPHETAMINE SULFATE\DEXTROAMPHETAMINE SACCHARATE\DEXTROAMPHETAMINE SULFATE

REACTIONS (1)
  - Tremor [Not Recovered/Not Resolved]
